FAERS Safety Report 24208548 (Version 1)
Quarter: 2024Q3

REPORT INFORMATION
  Report Type: Spontaneous
  Country: CH (occurrence: CH)
  Receive Date: 20240814
  Receipt Date: 20240814
  Transmission Date: 20241016
  Serious: Yes (Other)
  Sender: ABBVIE
  Company Number: CH-ABBVIE-5874708

PATIENT
  Age: 54 Year
  Sex: Female
  Weight: 83 kg

DRUGS (12)
  1. SKYRIZI [Suspect]
     Active Substance: RISANKIZUMAB-RZAA
     Indication: Enteropathic spondylitis
     Route: 058
     Dates: start: 202403, end: 20240701
  2. SKYRIZI [Suspect]
     Active Substance: RISANKIZUMAB-RZAA
     Indication: Enteropathic spondylitis
     Dosage: WEEK 0, 4, 8
     Route: 042
     Dates: start: 20231218, end: 202403
  3. ESOMEPRAZOLE MAGNESIUM [Concomitant]
     Active Substance: ESOMEPRAZOLE MAGNESIUM
     Indication: Product used for unknown indication
  4. COLCHICINE [Concomitant]
     Active Substance: COLCHICINE
     Indication: Pericarditis
     Route: 048
     Dates: start: 20240423
  5. INCLISIRAN SODIUM [Concomitant]
     Active Substance: INCLISIRAN SODIUM
     Indication: Product used for unknown indication
     Route: 058
  6. METHOTREXATE [Suspect]
     Active Substance: METHOTREXATE
     Indication: Enteropathic spondylitis
     Route: 058
     Dates: start: 202310, end: 20240615
  7. METHOTREXATE [Suspect]
     Active Substance: METHOTREXATE
     Indication: Enteropathic spondylitis
     Route: 058
     Dates: start: 20240615
  8. METHOTREXATE [Suspect]
     Active Substance: METHOTREXATE
     Indication: Enteropathic spondylitis
     Route: 065
     Dates: start: 201910
  9. CITALOPRAM HYDROBROMIDE [Concomitant]
     Active Substance: CITALOPRAM HYDROBROMIDE
     Indication: Product used for unknown indication
     Route: 048
  10. PREGABALIN [Concomitant]
     Active Substance: PREGABALIN
     Indication: Product used for unknown indication
     Route: 048
  11. VALPROIC ACID [Concomitant]
     Active Substance: VALPROIC ACID
     Indication: Product used for unknown indication
     Route: 048
  12. IBUPROFEN [Concomitant]
     Active Substance: IBUPROFEN
     Indication: Pericarditis
     Route: 048
     Dates: start: 20240423

REACTIONS (2)
  - Pericarditis [Not Recovered/Not Resolved]
  - Off label use [Unknown]

NARRATIVE: CASE EVENT DATE: 20231218
